FAERS Safety Report 8209854-4 (Version None)
Quarter: 2012Q1

REPORT INFORMATION
  Report Type: 
  Country: None (occurrence: None)
  Receive Date: 20120314
  Receipt Date: 20120306
  Transmission Date: 20120608
  Serious: Yes (Hospitalization)
  Sender: FDA-Public Use
  Company Number: PHHO2011AU10645

PATIENT
  Sex: Male
  Weight: 40.7 kg

DRUGS (9)
  1. AUY922 [Suspect]
     Indication: MULTIPLE MYELOMA
     Dosage: 99.4 MG, UNK
     Route: 042
     Dates: start: 20110216, end: 20110525
  2. ACETYLSALICYLIC ACID SRT [Suspect]
     Dosage: 100 MG, DAILY
     Dates: start: 19960101, end: 20110612
  3. ACETAMINOPHEN [Concomitant]
     Indication: ARTHRITIS
     Dosage: 1330 MG, TID
     Dates: start: 20090101
  4. MEGA [Concomitant]
     Dosage: UNK
     Dates: start: 20100101
  5. FERRO [Concomitant]
     Indication: BLOOD IRON DECREASED
     Dosage: UNK
     Dates: start: 20080101
  6. TRAMADOL HCL [Concomitant]
     Indication: ABDOMINAL PAIN
     Dosage: 50 MG, PRN
     Route: 054
     Dates: start: 20100101
  7. CENTRUM [Concomitant]
     Dosage: UNK
     Dates: start: 20100101
  8. AUY922 [Suspect]
     Dosage: 95.2 MG, UNK
     Route: 042
     Dates: start: 20110601, end: 20110608
  9. METOCLOPRAMIDE [Concomitant]
     Indication: NAUSEA
     Dosage: 10-20, MG, PRN
     Dates: start: 20110523

REACTIONS (3)
  - ANAEMIA [None]
  - RECTAL HAEMORRHAGE [None]
  - DIARRHOEA [None]
